FAERS Safety Report 20947555 (Version 1)
Quarter: 2022Q2

REPORT INFORMATION
  Report Type: Report from Study
  Country: US (occurrence: US)
  Receive Date: 20220610
  Receipt Date: 20220610
  Transmission Date: 20220720
  Serious: Yes (Other)
  Sender: FDA-Public Use
  Company Number: US-ABBVIE-22K-163-4414462-00

PATIENT
  Age: 32 Year
  Sex: Female
  Weight: 48.578 kg

DRUGS (7)
  1. HUMIRA [Suspect]
     Active Substance: ADALIMUMAB
     Indication: Rheumatoid arthritis
     Route: 058
     Dates: start: 202110, end: 202201
  2. HUMIRA [Suspect]
     Active Substance: ADALIMUMAB
     Route: 058
     Dates: start: 202201, end: 202201
  3. BUSPIRONE [Concomitant]
     Active Substance: BUSPIRONE HYDROCHLORIDE
     Indication: Anxiolytic therapy
  4. CELEBREX [Concomitant]
     Active Substance: CELECOXIB
     Indication: Rheumatoid arthritis
  5. WELLBUTRIN [Concomitant]
     Active Substance: BUPROPION HYDROCHLORIDE
     Indication: Anxiolytic therapy
  6. IRON [Concomitant]
     Active Substance: IRON
     Indication: Supplementation therapy
  7. VITAMIN B [Concomitant]
     Active Substance: VITAMIN B
     Indication: Supplementation therapy

REACTIONS (5)
  - Limb mass [Unknown]
  - Asthenia [Recovering/Resolving]
  - Pain in extremity [Recovering/Resolving]
  - Drug ineffective [Recovering/Resolving]
  - Rheumatoid arthritis [Unknown]

NARRATIVE: CASE EVENT DATE: 20220101
